FAERS Safety Report 7473708-1 (Version None)
Quarter: 2011Q2

REPORT INFORMATION
  Report Type: 
  Country: None (occurrence: None)
  Receive Date: 20110511
  Receipt Date: 20110503
  Transmission Date: 20111010
  Serious: Yes (Hospitalization)
  Sender: FDA-Public Use
  Company Number: SE-ROCHE-771954

PATIENT
  Sex: Female
  Weight: 68 kg

DRUGS (26)
  1. ALVEDON [Concomitant]
     Dosage: 2-2-2
  2. SYMBICORT FORTE [Concomitant]
     Dosage: 1-0-1
  3. GABAPENTIN [Concomitant]
     Dosage: 1-1-2
  4. PREDNISOLONE [Concomitant]
     Dosage: 1-0-1
  5. CALCICHEW D3 [Concomitant]
     Dosage: 1-0-1
  6. METOPROLOL SUCCINATE [Concomitant]
     Dosage: 1 1/2-0-0
  7. ACTEMRA [Suspect]
     Indication: WEBER-CHRISTIAN DISEASE
     Route: 042
     Dates: start: 20110203, end: 20110214
  8. DUROFERON [Concomitant]
  9. OMEPRAZOLE [Concomitant]
     Dosage: FREQUENCY REPORTED AS 1 VB
  10. DIMOR [Concomitant]
     Dosage: 1-0-0
  11. SPIRIVA [Concomitant]
     Dosage: 1-0-0
  12. NEXIUM [Concomitant]
     Dosage: 1-0-0
  13. PLENDIL [Concomitant]
     Dosage: 1-0-0
  14. ACETYLCYSTEINE [Concomitant]
     Dosage: 1-0-1
  15. LEVOTHYROXINE SODIUM [Concomitant]
     Dosage: 1-0-0
  16. OXYCONTIN [Concomitant]
     Dosage: 2-2-2
  17. FOLACIN [Concomitant]
     Dosage: 1-0-0
  18. BEZALIP [Concomitant]
     Dosage: 1-1-1
  19. LIPITOR [Concomitant]
     Dosage: 1-0-0
  20. INSULIN [Concomitant]
  21. ENALAPRIL [Concomitant]
     Dosage: 1/2-0-0
  22. FURIX [Concomitant]
     Dosage: 1-0-0
  23. METFORMIN HCL [Concomitant]
     Dosage: 1-1-0
  24. PRIMPERAN TAB [Concomitant]
     Dosage: FREQUENCY REPORTED AS 1 VB
  25. SOLVEZINK [Concomitant]
     Dosage: 1-1-1
  26. OXYNORM [Concomitant]
     Dosage: FREQUENCY REPORTED AS 1 VB

REACTIONS (7)
  - HAEMOGLOBIN DECREASED [None]
  - RAYNAUD'S PHENOMENON [None]
  - UROSEPSIS [None]
  - EXTREMITY NECROSIS [None]
  - PYREXIA [None]
  - RETINAL ARTERY EMBOLISM [None]
  - OEDEMA PERIPHERAL [None]
